FAERS Safety Report 16999812 (Version 1)
Quarter: 2019Q4

REPORT INFORMATION
  Report Type: Spontaneous
  Country: AU (occurrence: AU)
  Receive Date: 20191105
  Receipt Date: 20191105
  Transmission Date: 20200122
  Serious: Yes (Other)
  Sender: FDA-Public Use
  Company Number: NVSC2019AU023338

PATIENT
  Age: 85 Year
  Sex: Female

DRUGS (1)
  1. KISQALI [Suspect]
     Active Substance: RIBOCICLIB
     Indication: PRODUCT USED FOR UNKNOWN INDICATION
     Route: 065

REACTIONS (6)
  - Metastases to bone [Unknown]
  - Neutropenia [Unknown]
  - Nasopharyngitis [Unknown]
  - Metastases to lung [Unknown]
  - Osteopenia [Unknown]
  - Fatigue [Unknown]
